FAERS Safety Report 5312208-1 (Version None)
Quarter: 2007Q2

REPORT INFORMATION
  Report Type: 
  Country: None (occurrence: None)
  Receive Date: 20070430
  Receipt Date: 20060906
  Transmission Date: 20071010
  Serious: No
  Sender: FDA-Public Use
  Company Number: 2006UW17430

PATIENT
  Age: 59 Year
  Sex: Female

DRUGS (6)
  1. NEXIUM [Suspect]
     Indication: GASTROOESOPHAGEAL REFLUX DISEASE
     Route: 048
     Dates: start: 20060814
  2. OXYTROL [Interacting]
     Indication: HYPERTONIC BLADDER
     Route: 062
     Dates: start: 20060601, end: 20060801
  3. OXYTROL [Interacting]
     Route: 062
     Dates: start: 20060801
  4. CALCIUM CHLORIDE [Concomitant]
  5. LISINOPRIL [Concomitant]
  6. ACTONEL [Concomitant]

REACTIONS (1)
  - DRUG INTERACTION [None]
